FAERS Safety Report 4870464-8 (Version None)
Quarter: 2006Q1

REPORT INFORMATION
  Report Type: 
  Country: None (occurrence: None)
  Receive Date: 20060103
  Receipt Date: 20051220
  Transmission Date: 20060701
  Serious: Yes (Hospitalization, Other)
  Sender: FDA-Public Use
  Company Number: US-AMGEN-US160412

PATIENT
  Sex: Female

DRUGS (13)
  1. ARANESP [Suspect]
     Indication: RENAL TRANSPLANT
     Route: 058
     Dates: start: 20030404, end: 20051112
  2. CELLCEPT [Concomitant]
  3. DILANTIN [Concomitant]
  4. PREDNISONE [Concomitant]
  5. ROCALTROL [Concomitant]
  6. COUMADIN [Concomitant]
  7. LASIX [Concomitant]
  8. BACTRIM [Concomitant]
  9. VASOTEC [Concomitant]
  10. SODIUM BICARBONATE [Concomitant]
  11. CALCIUM GLUCONATE [Concomitant]
  12. NYSTATIN [Concomitant]
  13. ZANTAC [Concomitant]

REACTIONS (4)
  - BONE MARROW FAILURE [None]
  - FATIGUE [None]
  - PNEUMONIA [None]
  - THERAPEUTIC RESPONSE DECREASED [None]
